FAERS Safety Report 24176590 (Version 1)
Quarter: 2024Q3

REPORT INFORMATION
  Report Type: Spontaneous
  Country: NL (occurrence: NL)
  Receive Date: 20240806
  Receipt Date: 20240806
  Transmission Date: 20241016
  Serious: Yes (Other)
  Sender: AUROBINDO
  Company Number: NL-LRB-00990519

PATIENT
  Age: 69 Year
  Sex: Female
  Weight: 70 kg

DRUGS (6)
  1. LISINOPRIL [Interacting]
     Active Substance: LISINOPRIL
     Indication: Product used for unknown indication
     Dosage: 10 MILLIGRAM, ONCE A DAY (1DD10MG)
     Route: 065
     Dates: start: 20230411
  2. ALTEPLASE [Interacting]
     Active Substance: ALTEPLASE
     Indication: Thrombolysis
     Dosage: 56.78 MILLIGRAM (ONE-TIME ALTEPLASE 56.782 MG IN 56.8 ML INFUSION)
     Route: 065
     Dates: start: 20240710
  3. ALTEPLASE [Interacting]
     Active Substance: ALTEPLASE
     Indication: Cerebral infarction
  4. ATORVASTATIN [Concomitant]
     Active Substance: ATORVASTATIN
     Indication: Product used for unknown indication
     Dosage: 40 MILLIGRAM (TABLET, 40 MG (MILLIGRAM))
     Route: 065
  5. BISOPROLOL [Concomitant]
     Active Substance: BISOPROLOL\BISOPROLOL FUMARATE
     Indication: Product used for unknown indication
     Dosage: 2.5 MILLIGRAM (TABLET, 2,5 MG (MILLIGRAM))
     Route: 065
  6. METFORMIN [Concomitant]
     Active Substance: METFORMIN HYDROCHLORIDE
     Indication: Product used for unknown indication
     Dosage: 850 MILLIGRAM (TABLET, 850 MG (MILLIGRAM))
     Route: 065

REACTIONS (2)
  - Angioedema [Recovered/Resolved]
  - Drug interaction [Recovered/Resolved]
